FAERS Safety Report 12358544 (Version 1)
Quarter: 2016Q2

REPORT INFORMATION
  Report Type: Spontaneous
  Country: US (occurrence: None)
  Receive Date: 20160511
  Receipt Date: 20160511
  Transmission Date: 20160815
  Serious: Yes (Life-Threatening, Disabling)
  Sender: FDA-Public Use
  Company Number: None

PATIENT
  Age: 66 Year
  Sex: Female
  Weight: 74.84 kg

DRUGS (5)
  1. CALCIUM/VIT D [Concomitant]
  2. INDREROL [Concomitant]
  3. 50 + MULTIVITAMIN [Concomitant]
  4. KENALOG [Suspect]
     Active Substance: TRIAMCINOLONE ACETONIDE
     Indication: ARTHRALGIA
     Dosage: 1 INJECTION BY DR.
     Dates: start: 20151028, end: 20151028
  5. PROPRANOLOL [Concomitant]
     Active Substance: PROPRANOLOL\PROPRANOLOL HYDROCHLORIDE

REACTIONS (23)
  - Nervousness [None]
  - Stress [None]
  - Migraine [None]
  - Upper respiratory tract infection [None]
  - Nausea [None]
  - Infection susceptibility increased [None]
  - Arthralgia [None]
  - Hair texture abnormal [None]
  - Blood pressure increased [None]
  - Musculoskeletal pain [None]
  - Pruritus [None]
  - Chills [None]
  - Heart rate irregular [None]
  - Hot flush [None]
  - Food intolerance [None]
  - Hiccups [None]
  - Postmenopausal haemorrhage [None]
  - Mental impairment [None]
  - Palpitations [None]
  - Dyspepsia [None]
  - Muscle spasms [None]
  - Unevaluable event [None]
  - Insomnia [None]

NARRATIVE: CASE EVENT DATE: 20151228
